FAERS Safety Report 7027407-0 (Version None)
Quarter: 2010Q4

REPORT INFORMATION
  Report Type: 
  Country: None (occurrence: None)
  Receive Date: 20101004
  Receipt Date: 20100924
  Transmission Date: 20110411
  Serious: Yes (Death)
  Sender: FDA-Public Use
  Company Number: US-ABBOTT-10P-163-0673105-02

PATIENT
  Sex: Male

DRUGS (15)
  1. HUMIRA [Suspect]
     Indication: CROHN'S DISEASE
     Route: 058
  2. FERROUS SULFATE [Concomitant]
     Indication: ANAEMIA
     Dates: start: 20080206
  3. MORPHINE [Concomitant]
     Indication: PAIN
     Dates: start: 20070520
  4. NORVASC [Concomitant]
     Indication: HYPERTENSION
     Dates: start: 20080101
  5. OMEPRAZOLE [Concomitant]
     Indication: GASTROOESOPHAGEAL REFLUX DISEASE
     Dates: start: 20070101
  6. LANTUS [Concomitant]
     Indication: DIABETES MELLITUS
     Dates: start: 20081209, end: 20100401
  7. LANTUS [Concomitant]
     Dates: start: 20100401
  8. FLUOCINONIDE [Concomitant]
     Indication: PYODERMA GANGRENOSUM
     Dates: start: 20081028
  9. ASACOL [Concomitant]
     Indication: CROHN'S DISEASE
     Dates: start: 20090917
  10. LOTRIMIN AF [Concomitant]
     Indication: ANTIFUNGAL PROPHYLAXIS
     Dates: start: 20090201
  11. NOVOLOG [Concomitant]
     Indication: DIABETES MELLITUS
     Dosage: 2-6 UNITS TID
     Dates: start: 20100401
  12. OSCAL D [Concomitant]
     Indication: MEDICAL DIET
     Dosage: 1250MG/200 UNIT
     Dates: start: 20070101
  13. SIMVASTATIN [Concomitant]
     Indication: HYPERCHOLESTEROLAEMIA
     Dates: start: 20100309
  14. TRAMADOL HCL [Concomitant]
     Indication: NECK PAIN
     Dates: start: 20091101
  15. PROTOPIC [Concomitant]
     Indication: PYODERMA GANGRENOSUM
     Dates: start: 20070101

REACTIONS (2)
  - DEATH [None]
  - SUDDEN DEATH [None]
